FAERS Safety Report 5759303-0 (Version None)
Quarter: 2008Q2

REPORT INFORMATION
  Report Type: 
  Country: None (occurrence: None)
  Receive Date: 20080605
  Receipt Date: 20080530
  Transmission Date: 20081010
  Serious: Yes (Hospitalization)
  Sender: FDA-Public Use
  Company Number: US-RANBAXY-2008RR-15188

PATIENT

DRUGS (12)
  1. LEVOFLOXACIN [Suspect]
  2. LAMIVUDINE [Suspect]
     Indication: HIV INFECTION
  3. STAVUDINE [Suspect]
     Indication: HIV INFECTION
  4. ABACAVIR [Suspect]
     Indication: HIV INFECTION
  5. RIFAMPICIN [Concomitant]
     Indication: TUBERCULOSIS
  6. ISONIAZID [Concomitant]
     Indication: TUBERCULOSIS
  7. PYRAZINAMIDE [Concomitant]
     Indication: TUBERCULOSIS
  8. ETHAMBUTOL HYDROCHLORIDE [Concomitant]
     Indication: TUBERCULOSIS
  9. LOPINAVIR AND RITONAVIR [Concomitant]
     Indication: HIV INFECTION
  10. INDOMETHACIN [Concomitant]
  11. EFAVIRENZ [Concomitant]
     Indication: HIV INFECTION
  12. PREDNISOLONE [Concomitant]
     Dosage: 60 MG, QD

REACTIONS (3)
  - CARDIAC TAMPONADE [None]
  - IMMUNE RECONSTITUTION SYNDROME [None]
  - TUBERCULOSIS [None]
